FAERS Safety Report 25238352 (Version 4)
Quarter: 2025Q2

REPORT INFORMATION
  Report Type: Report from Study
  Country: US (occurrence: US)
  Receive Date: 20250425
  Receipt Date: 20250530
  Transmission Date: 20250717
  Serious: No
  Sender: SANDOZ
  Company Number: US-SANDOZ-SDZ2025US025778

PATIENT
  Age: 11 Year
  Sex: Female

DRUGS (6)
  1. OMNITROPE [Suspect]
     Active Substance: SOMATROPIN
     Dosage: 0.42 ML, QD
     Route: 058
  2. OMNITROPE [Suspect]
     Active Substance: SOMATROPIN
     Dosage: 0.42 ML, QD
     Route: 058
  3. OMNITROPE [Suspect]
     Active Substance: SOMATROPIN
     Indication: Short stature
     Dosage: 2.1 MG, QD
     Route: 058
     Dates: start: 202504
  4. OMNITROPE [Suspect]
     Active Substance: SOMATROPIN
     Indication: Short stature
     Dosage: 2.1 MG, QD
     Route: 058
     Dates: start: 202504
  5. OMNITROPE [Suspect]
     Active Substance: SOMATROPIN
     Dosage: 0.42 ML, QD, 5 MG/ML POWDER AND SOLVENT
     Route: 058
  6. OMNITROPE [Suspect]
     Active Substance: SOMATROPIN
     Dosage: 0.42 ML, QD, 5 MG/ML POWDER AND SOLVENT
     Route: 058

REACTIONS (3)
  - Injection site bruising [Recovered/Resolved]
  - Injection site bruising [Unknown]
  - Wrong device used [Unknown]

NARRATIVE: CASE EVENT DATE: 20250401
